FAERS Safety Report 9928242 (Version 1)
Quarter: 2014Q1

REPORT INFORMATION
  Report Type: Report from Study
  Country: US (occurrence: US)
  Receive Date: 20140227
  Receipt Date: 20140227
  Transmission Date: 20141002
  Serious: Yes (Death)
  Sender: FDA-Public Use
  Company Number: US-ASTRAZENECA-2014SE12699

PATIENT
  Age: 64 Year
  Sex: 0

DRUGS (2)
  1. SYMBICORT [Suspect]
     Dosage: 160/4.5 BID
     Route: 055
  2. NEXIUM [Suspect]
     Route: 048

REACTIONS (1)
  - Death [Fatal]
